FAERS Safety Report 8910030 (Version 2)
Quarter: 2013Q1

REPORT INFORMATION
  Report Type: Spontaneous
  Country: ZA (occurrence: ZA)
  Receive Date: 20121115
  Receipt Date: 20130327
  Transmission Date: 20140127
  Serious: Yes (Hospitalization)
  Sender: FDA-Public Use
  Company Number: ZA-ABBOTT-12P-143-1005200-00

PATIENT
  Sex: Male

DRUGS (7)
  1. HUMIRA [Suspect]
     Indication: CROHN^S DISEASE
     Route: 058
     Dates: start: 20120731
  2. SERDEP [Concomitant]
     Indication: PRODUCT USED FOR UNKNOWN INDICATION
     Dosage: 25 MG (HALF A TABLET) DAILY
  3. PREDNISONE [Concomitant]
     Indication: CROHN^S DISEASE
  4. AZAPRESS [Concomitant]
     Indication: CROHN^S DISEASE
  5. AZATHIOPRINE [Concomitant]
     Indication: CROHN^S DISEASE
  6. SERTRALINE [Concomitant]
     Indication: DEPRESSION
  7. EPILIM [Concomitant]
     Indication: CONVULSION

REACTIONS (9)
  - Hallucination [Recovering/Resolving]
  - Mood swings [Recovering/Resolving]
  - Chest pain [Recovering/Resolving]
  - Arthralgia [Recovering/Resolving]
  - Weight increased [Unknown]
  - Tachycardia [Unknown]
  - Depression [Unknown]
  - Psychogenic seizure [Unknown]
  - Neuropsychiatric syndrome [Unknown]
